FAERS Safety Report 8903158 (Version 1)
Quarter: 2012Q4

REPORT INFORMATION
  Report Type: 
  Country: BR (occurrence: BR)
  Receive Date: 20121113
  Receipt Date: 20121113
  Transmission Date: 20130627
  Serious: Yes (Other)
  Sender: FDA-Public Use
  Company Number: BR-PFIZER INC-2012278223

PATIENT
  Age: 66 Year
  Sex: Female
  Weight: 97 kg

DRUGS (8)
  1. DETRUSITOL LA [Suspect]
     Indication: MICTURITION URGENCY
     Dosage: 4 mg (1 capsule), 1x/day
     Route: 048
     Dates: start: 20121026, end: 20121106
  2. ATORVASTATIN CALCIUM [Concomitant]
     Indication: DYSLIPIDEMIA
     Dosage: 20 mg, (1 tablet), 1x/day
  3. INSULIN LISPRO [Concomitant]
     Indication: DIABETES
     Dosage: 4 IU, 3x/day
     Dates: start: 201205
  4. LOSARTAN [Concomitant]
     Indication: BLOOD PRESSURE
     Dosage: 2 tablets of 50mg a Day
     Dates: start: 2009
  5. PANTOPRAZOLE [Concomitant]
     Indication: GASTROESOPHAGEAL REFLUX
     Dosage: 1 tablet of 40mg, 2x/day (1 in the morning and another at night)
     Dates: start: 2007
  6. LEVEMIR [Concomitant]
     Indication: DIABETES
     Dosage: 34 IU in the morning and 20 IU at night
     Dates: start: 201205
  7. TRAYENTA [Concomitant]
     Indication: DIABETES
     Dosage: 5 mg (1 tablet), 1x/day
     Route: 048
     Dates: start: 2011
  8. AGLITIL [Concomitant]
     Indication: DIABETES
     Dosage: 15 mg (1 tablet), 1x/day
     Dates: start: 2010

REACTIONS (2)
  - Product packaging issue [Unknown]
  - Blood glucose increased [Unknown]
